FAERS Safety Report 4705586-5 (Version None)
Quarter: 2005Q2

REPORT INFORMATION
  Report Type: 
  Country: None (occurrence: None)
  Receive Date: 20050629
  Receipt Date: 20040915
  Transmission Date: 20051028
  Serious: Yes (Death, Hospitalization)
  Sender: FDA-Public Use
  Company Number: 200412801EU

PATIENT
  Age: 65 Year
  Sex: Male
  Weight: 65 kg

DRUGS (4)
  1. CISPLATIN [Suspect]
     Indication: SQUAMOUS CELL CARCINOMA
     Dosage: 35 MG/DAY IV
     Route: 042
     Dates: start: 20040817, end: 20040821
  2. FLUOROURACIL [Suspect]
     Indication: SQUAMOUS CELL CARCINOMA
     Dosage: 1375 MG/DAY IV
     Route: 042
     Dates: start: 20040817, end: 20040821
  3. RADIOTHERAPY [Suspect]
     Indication: SQUAMOUS CELL CARCINOMA
     Dosage: CYC
     Dates: start: 20040817, end: 20040821
  4. RADIOTHERAPY [Suspect]
     Indication: SQUAMOUS CELL CARCINOMA
     Dosage: CYC
     Dates: start: 20040831, end: 20040904

REACTIONS (2)
  - ASTHENIA [None]
  - DYSPHAGIA [None]
